FAERS Safety Report 8478044-2 (Version None)
Quarter: 2012Q2

REPORT INFORMATION
  Report Type: 
  Country: None (occurrence: None)
  Receive Date: 20120402
  Receipt Date: 20110715
  Transmission Date: 20120825
  Serious: Yes (Hospitalization)
  Sender: FDA-Public Use
  Company Number: 2011EK000018

PATIENT
  Sex: Male

DRUGS (2)
  1. LABETALOL HCL [Suspect]
     Indication: PRODUCT USED FOR UNKNOWN INDICATION
     Dates: start: 20110101
  2. CARDENE [Suspect]
     Indication: CEREBRAL HAEMORRHAGE
     Dosage: ; IV
     Route: 042
     Dates: start: 20110101

REACTIONS (1)
  - HYPOTENSION [None]
